FAERS Safety Report 18819906 (Version 1)
Quarter: 2021Q1

REPORT INFORMATION
  Report Type: Spontaneous
  Country: US (occurrence: US)
  Receive Date: 20210202
  Receipt Date: 20210202
  Transmission Date: 20210419
  Serious: No
  Sender: FDA-Public Use
  Company Number: US-UNITED THERAPEUTICS-UNT-2021-001787

PATIENT
  Sex: Female

DRUGS (2)
  1. TYVASO [Suspect]
     Active Substance: TREPROSTINIL
     Indication: PULMONARY ARTERIAL HYPERTENSION
     Dosage: UNK
     Dates: start: 20191024
  2. TYVASO [Suspect]
     Active Substance: TREPROSTINIL
     Dosage: 90 ?G, QID
     Dates: start: 20210124

REACTIONS (6)
  - Myalgia [Unknown]
  - Abdominal pain [Recovering/Resolving]
  - Decreased appetite [Unknown]
  - Off label use [Unknown]
  - Nausea [Unknown]
  - Dyspnoea [Unknown]
